FAERS Safety Report 24466899 (Version 1)
Quarter: 2024Q4

REPORT INFORMATION
  Report Type: Report from Study
  Country: US (occurrence: US)
  Receive Date: 20241018
  Receipt Date: 20241018
  Transmission Date: 20250114
  Serious: No
  Sender: ROCHE
  Company Number: US-ROCHE-3547643

PATIENT
  Age: 63 Year
  Sex: Male
  Weight: 73.48 kg

DRUGS (5)
  1. XOLAIR [Suspect]
     Active Substance: OMALIZUMAB
     Indication: Idiopathic urticaria
     Dosage: 150MG IN EACH ARM
     Route: 058
  2. SINGULAIR [Concomitant]
     Active Substance: MONTELUKAST SODIUM
  3. ZYRTEX [Concomitant]
  4. FLUTICASONE [Concomitant]
     Active Substance: FLUTICASONE
  5. LEVOTHYROXINE [Concomitant]
     Active Substance: LEVOTHYROXINE

REACTIONS (2)
  - Urticaria [Not Recovered/Not Resolved]
  - Swelling [Not Recovered/Not Resolved]

NARRATIVE: CASE EVENT DATE: 20240416
